FAERS Safety Report 6141332-9 (Version None)
Quarter: 2009Q2

REPORT INFORMATION
  Report Type: 
  Country: None (occurrence: None)
  Receive Date: 20090402
  Receipt Date: 20090327
  Transmission Date: 20091009
  Serious: Yes (Death, Other)
  Sender: FDA-Public Use
  Company Number: US-BAYER-200840199NA

PATIENT
  Age: 54 Year
  Sex: Male

DRUGS (3)
  1. NEXAVAR [Suspect]
     Indication: HEPATIC CANCER METASTATIC
     Dosage: TOTAL DAILY DOSE: 800 MG  UNIT DOSE: 20 MG
     Route: 048
     Dates: start: 20081001
  2. NEXAVAR [Suspect]
     Dosage: REDUCED DOSAGE
     Route: 048
  3. NEXAVAR [Suspect]
     Dosage: AS USED: 400/200 MG  UNIT DOSE: 200 MG
     Route: 048
     Dates: start: 20080101, end: 20081219

REACTIONS (5)
  - CHEST DISCOMFORT [None]
  - CHEST PAIN [None]
  - DYSPNOEA [None]
  - HEPATIC NEOPLASM MALIGNANT [None]
  - NO THERAPEUTIC RESPONSE [None]
